FAERS Safety Report 5079885-4 (Version None)
Quarter: 2006Q3

REPORT INFORMATION
  Report Type: 
  Country: None (occurrence: None)
  Receive Date: 20060810
  Receipt Date: 20060724
  Transmission Date: 20061208
  Serious: Yes (Other)
  Sender: FDA-Public Use
  Company Number: 2006065829

PATIENT
  Age: 75 Year
  Sex: Male

DRUGS (2)
  1. MACUGEN [Suspect]
     Indication: MACULAR DEGENERATION
     Dosage: (0.3 MG, 1 IN 6 WK), INTRAVITREOUS
     Dates: start: 20060320
  2. VITALUX (ASCORBIC ACID, BETACAROTENE, COPPER, RIBOFLAVIN, SELENIUM, TO [Concomitant]

REACTIONS (2)
  - RETINAL HAEMORRHAGE [None]
  - VISUAL ACUITY REDUCED [None]
